FAERS Safety Report 7545732-1 (Version None)
Quarter: 2011Q2

REPORT INFORMATION
  Report Type: 
  Country: None (occurrence: None)
  Receive Date: 20110613
  Receipt Date: 20110613
  Transmission Date: 20111010
  Serious: Yes (Life-Threatening, Other)
  Sender: FDA-Public Use
  Company Number: None

PATIENT
  Age: 30 Year
  Sex: Male
  Weight: 63.5036 kg

DRUGS (3)
  1. NAPROXEN [Suspect]
     Indication: MYALGIA
     Dosage: 1 PILL ONCE BY MOUTH
     Route: 048
     Dates: start: 20110609, end: 20110609
  2. HUMALOG [Suspect]
  3. LANTUS [Suspect]

REACTIONS (1)
  - BLOOD GLUCOSE DECREASED [None]
